FAERS Safety Report 9483870 (Version 1)
Quarter: 2013Q3

REPORT INFORMATION
  Report Type: Spontaneous
  Country: US (occurrence: US)
  Receive Date: 20130828
  Receipt Date: 20130828
  Transmission Date: 20140515
  Serious: Yes (Other)
  Sender: FDA-Public Use
  Company Number: PHEH2013US018125

PATIENT
  Sex: Female

DRUGS (3)
  1. DIOVAN [Suspect]
     Dosage: 160 MG, UNK
  2. PROZAC [Concomitant]
     Dosage: 20 MG, UNK
  3. CALCIUM [Concomitant]
     Dosage: 2000 MG, UNK

REACTIONS (3)
  - Lung carcinoma cell type unspecified stage I [Unknown]
  - Osteopenia [Unknown]
  - Premature menopause [Unknown]
